FAERS Safety Report 10470339 (Version 1)
Quarter: 2014Q3

REPORT INFORMATION
  Report Type: Spontaneous
  Country: US (occurrence: None)
  Receive Date: 20140909
  Receipt Date: 20140909
  Transmission Date: 20150326
  Serious: Yes (Other)
  Sender: FDA-Public Use
  Company Number: 1341114

PATIENT
  Age: 70 Year

DRUGS (12)
  1. TOPROL XL (METOPROLOL SUCCINATE) (TABLET) [Concomitant]
  2. VESICARE [Concomitant]
     Active Substance: SOLIFENACIN SUCCINATE
  3. LATANOPROST. [Concomitant]
     Active Substance: LATANOPROST
  4. LUCENTIS [Suspect]
     Active Substance: RANIBIZUMAB
     Indication: AGE-RELATED MACULAR DEGENERATION
     Dosage: EVERY 4-6 WEEKS
     Route: 031
     Dates: start: 20140114
  5. MELOXICAM (MELOXICAM) [Concomitant]
     Active Substance: MELOXICAM
  6. COZAAR [Concomitant]
     Active Substance: LOSARTAN POTASSIUM
  7. BUMEX (BUMETANIDE) [Concomitant]
  8. ZOLOFT [Concomitant]
     Active Substance: SERTRALINE HYDROCHLORIDE
  9. VENTOLIN INHALER (SALBUTAMOL SULFATE) [Concomitant]
  10. L-LEVOTHYROXINE (LEVOTHYROXINE SODIUM) [Concomitant]
  11. ASPIRIN. [Concomitant]
     Active Substance: ASPIRIN
  12. AVASTIN [Suspect]
     Active Substance: BEVACIZUMAB
     Indication: PRODUCT USED FOR UNKNOWN INDICATION
     Dosage: LEFT EYE
     Route: 031

REACTIONS (2)
  - Intraocular pressure increased [None]
  - Vitritis [None]

NARRATIVE: CASE EVENT DATE: 20140114
